FAERS Safety Report 17185656 (Version 1)
Quarter: 2019Q4

REPORT INFORMATION
  Report Type: Spontaneous
  Country: CA (occurrence: CA)
  Receive Date: 20191220
  Receipt Date: 20191220
  Transmission Date: 20200122
  Serious: Yes (Hospitalization)
  Sender: FDA-Public Use
  Company Number: CA-MYLANLABS-2019M1126768

PATIENT
  Age: 26 Year
  Sex: Male
  Weight: 95 kg

DRUGS (3)
  1. AMOXIL                             /00249601/ [Suspect]
     Active Substance: AMOXICILLIN
     Indication: HELICOBACTER INFECTION
     Dosage: UNK
  2. PREVACID [Suspect]
     Active Substance: LANSOPRAZOLE
     Indication: HELICOBACTER INFECTION
     Dosage: UNK
  3. CLARITHROMYCIN. [Suspect]
     Active Substance: CLARITHROMYCIN
     Indication: HELICOBACTER INFECTION
     Dosage: UNK

REACTIONS (3)
  - Abnormal behaviour [Recovering/Resolving]
  - Unresponsive to stimuli [Recovering/Resolving]
  - Psychotic disorder [Recovering/Resolving]
